FAERS Safety Report 6870818-4 (Version None)
Quarter: 2010Q3

REPORT INFORMATION
  Report Type: 
  Country: None (occurrence: None)
  Receive Date: 20100723
  Receipt Date: 20100714
  Transmission Date: 20110219
  Serious: Yes (Other)
  Sender: FDA-Public Use
  Company Number: US-ASTRAZENECA-2008UW13725

PATIENT
  Age: 718 Month
  Sex: Female
  Weight: 70.8 kg

DRUGS (17)
  1. ARIMIDEX [Suspect]
     Indication: BREAST CANCER
     Route: 048
     Dates: start: 20080317
  2. KY PEARLS OR OVULES [Concomitant]
  3. CYMBALTA [Concomitant]
  4. COGENTIN [Concomitant]
     Indication: MENTAL DISORDER
     Route: 048
  5. NAVANE [Concomitant]
     Indication: MENTAL DISORDER
     Route: 048
  6. TRANXENE [Concomitant]
  7. VISTARIL [Concomitant]
     Indication: HALLUCINATION
     Route: 048
  8. DESIPRAMINE HCL [Concomitant]
  9. FOSAMAX [Concomitant]
  10. GRANISETRON HCL [Concomitant]
  11. CALTRATE [Concomitant]
  12. ACTONEL [Concomitant]
     Indication: OSTEOPOROSIS
     Route: 048
  13. PRISTIQ [Concomitant]
     Indication: DEPRESSION
     Route: 048
  14. MIRTAZAPINE [Concomitant]
     Indication: MENTAL DISORDER
     Route: 048
  15. REMERON [Concomitant]
  16. BONIVA [Concomitant]
  17. LYRICA [Concomitant]

REACTIONS (15)
  - ABDOMINAL PAIN UPPER [None]
  - ARTHRALGIA [None]
  - BREAST MASS [None]
  - BURNING SENSATION [None]
  - DYSPNOEA [None]
  - DYSURIA [None]
  - HYPERHIDROSIS [None]
  - NAUSEA [None]
  - NEUROPATHY PERIPHERAL [None]
  - PAIN IN EXTREMITY [None]
  - POLYNEUROPATHY [None]
  - POST PROCEDURAL HAEMATOMA [None]
  - RASH PRURITIC [None]
  - SENSATION OF HEAVINESS [None]
  - VAGINAL HAEMORRHAGE [None]
